FAERS Safety Report 6038108-X (Version None)
Quarter: 2009Q1

REPORT INFORMATION
  Report Type: 
  Country: None (occurrence: None)
  Receive Date: 20090115
  Receipt Date: 20090106
  Transmission Date: 20090719
  Serious: Yes (Death)
  Sender: FDA-Public Use
  Company Number: JP-ABBOTT-09P-087-0497044-00

PATIENT
  Age: 75 Year
  Sex: Male

DRUGS (3)
  1. LEUPROLIDE ACETATE [Suspect]
     Indication: PROSTATE CANCER STAGE III
     Route: 058
     Dates: start: 20061114, end: 20080108
  2. CASODEX [Concomitant]
     Indication: PROSTATE CANCER STAGE III
     Route: 048
     Dates: start: 20061025, end: 20071016
  3. FLUTAMIDE [Concomitant]
     Indication: PROSTATE CANCER STAGE III
     Route: 048
     Dates: start: 20071016, end: 20080204

REACTIONS (1)
  - PROSTATE CANCER [None]
